FAERS Safety Report 10238483 (Version 2)
Quarter: 2014Q2

REPORT INFORMATION
  Report Type: Report from Study
  Country: CO (occurrence: CO)
  Receive Date: 20140616
  Receipt Date: 20140616
  Transmission Date: 20141212
  Serious: Yes (Death, Life-Threatening, Hospitalization, Other)
  Sender: FDA-Public Use
  Company Number: PHHY2014CO050562

PATIENT
  Age: 58 Year
  Sex: Female

DRUGS (9)
  1. SANDOSTATIN LAR [Suspect]
     Dosage: 30 MG, QMO
     Route: 030
     Dates: start: 20130426, end: 20130627
  2. SANDOSTATIN LAR [Suspect]
     Dosage: 30 MG, QMO
     Route: 030
     Dates: start: 20130827, end: 20131028
  3. SANDOSTATIN LAR [Suspect]
     Dosage: 30 MG, QMO
     Route: 030
     Dates: start: 20131216
  4. SANDOSTATIN LAR [Suspect]
     Dosage: 30 MG, QMO
     Route: 030
     Dates: start: 20140130
  5. SANDOSTATIN LAR [Suspect]
     Dosage: 30 MG, QMO
     Route: 030
     Dates: start: 20140227
  6. SANDOSTATIN LAR [Suspect]
     Dosage: 30 MG, QMO
     Route: 030
     Dates: start: 20140410
  7. SANDOSTATIN LAR [Suspect]
     Dosage: 30 MG, QMO
     Route: 030
     Dates: start: 20140512
  8. LUTETIUM (LU 177) [Suspect]
     Dosage: 35 DF, BID
     Dates: start: 20131127
  9. LUTETIUM (LU 177) [Suspect]
     Dosage: UNK UKN, UNK
     Dates: start: 20140128

REACTIONS (8)
  - Cardio-respiratory arrest [Fatal]
  - Pancreatitis [Not Recovered/Not Resolved]
  - Sepsis [Unknown]
  - Malignant neoplasm progression [Unknown]
  - Metastases to liver [None]
  - Metastases to pancreas [None]
  - Metastases to stomach [None]
  - Metastases to gallbladder [None]
